FAERS Safety Report 20475099 (Version 1)
Quarter: 2022Q1

REPORT INFORMATION
  Report Type: Spontaneous
  Country: None (occurrence: US)
  Receive Date: 20220215
  Receipt Date: 20220215
  Transmission Date: 20220423
  Serious: No
  Sender: FDA-Public Use
  Company Number: US-Xttrium Laboratories, Inc-2125901

PATIENT
  Sex: Male

DRUGS (1)
  1. SCRUB CARE EXIDINE-2 CHG [Suspect]
     Active Substance: CHLORHEXIDINE GLUCONATE
     Route: 003
     Dates: start: 20220124, end: 20220207

REACTIONS (1)
  - Rash [Recovering/Resolving]

NARRATIVE: CASE EVENT DATE: 20220124
